FAERS Safety Report 4817166-1 (Version None)
Quarter: 2005Q4

REPORT INFORMATION
  Report Type: 
  Country: None (occurrence: None)
  Receive Date: 20051018
  Receipt Date: 20050527
  Transmission Date: 20060501
  Serious: Yes (Other)
  Sender: FDA-Public Use
  Company Number: PHEH2005US06034

PATIENT

DRUGS (3)
  1. ZOMETA(ZOLENDRATE) SOLUTION FOR INJECTION [Suspect]
     Dates: start: 20031001, end: 20031101
  2. THALOMID [Suspect]
     Indication: MULTIPLE MYELOMA
     Dosage: 50 MG, QD   ; 50MG QOD, ORAL
     Route: 048
     Dates: start: 20031118, end: 20040501
  3. THALOMID [Suspect]
     Indication: MULTIPLE MYELOMA
     Dosage: 50 MG, QD   ; 50MG QOD, ORAL
     Route: 048
     Dates: start: 20040528, end: 20050210

REACTIONS (3)
  - DIALYSIS [None]
  - PARAESTHESIA [None]
  - RENAL FAILURE [None]
